FAERS Safety Report 6983837-4 (Version None)
Quarter: 2010Q3

REPORT INFORMATION
  Report Type: 
  Country: None (occurrence: None)
  Receive Date: 20100914
  Receipt Date: 20090421
  Transmission Date: 20110219
  Serious: No
  Sender: FDA-Public Use
  Company Number: US-WYE-H08308709

PATIENT
  Sex: Male
  Weight: 66.74 kg

DRUGS (8)
  1. TORISEL [Suspect]
     Indication: METASTATIC RENAL CELL CARCINOMA
     Route: 042
     Dates: start: 20090220
  2. AMLODIPINE [Concomitant]
  3. VICODIN [Concomitant]
  4. DILAUDID [Concomitant]
  5. DURAGESIC-100 [Concomitant]
  6. MEDROL [Concomitant]
     Indication: ERYTHEMA
     Dosage: ^AS DIRECTED^
     Route: 065
     Dates: start: 20090227
  7. MEDROL [Concomitant]
     Indication: PRURITUS
  8. ATIVAN [Concomitant]

REACTIONS (1)
  - EXTRAVASATION [None]
